FAERS Safety Report 14817317 (Version 3)
Quarter: 2018Q2

REPORT INFORMATION
  Report Type: Report from Study
  Country: US (occurrence: US)
  Receive Date: 20180426
  Receipt Date: 20180613
  Transmission Date: 20180711
  Serious: Yes (Death, Hospitalization, Other)
  Sender: FDA-Public Use
  Company Number: US-EXELIXIS-CABO-18012111

PATIENT
  Age: 49 Year
  Sex: Female
  Weight: 69.8 kg

DRUGS (8)
  1. MIFEPRISTONE [Suspect]
     Active Substance: MIFEPRISTONE
  2. VANDETANIB. [Suspect]
     Active Substance: VANDETANIB
     Indication: THYROID CANCER
  3. RAPAMUNE [Suspect]
     Active Substance: SIROLIMUS
     Dosage: 4 MG, QD
     Route: 048
     Dates: start: 20171223
  4. COMETRIQ [Suspect]
     Active Substance: CABOZANTINIB S-MALATE
     Indication: THYROID CANCER
     Dosage: 140 MG, QD
     Route: 048
     Dates: start: 20160307, end: 201605
  5. COMETRIQ [Suspect]
     Active Substance: CABOZANTINIB S-MALATE
     Dosage: 140 MG, QD
     Route: 048
     Dates: start: 20171222, end: 20180308
  6. CALCITONIN [Suspect]
     Active Substance: CALCITONIN
  7. RAPAMUNE [Suspect]
     Active Substance: SIROLIMUS
     Indication: THYROID CANCER
     Dosage: UNK
     Dates: start: 20170726
  8. SORAFENIB [Suspect]
     Active Substance: SORAFENIB

REACTIONS (17)
  - Urinary tract infection [Unknown]
  - Nausea [Not Recovered/Not Resolved]
  - Malignant neoplasm progression [Fatal]
  - Failure to thrive [Unknown]
  - Mental status changes [Not Recovered/Not Resolved]
  - Wound dehiscence [Unknown]
  - Nephrolithiasis [Unknown]
  - Pain [Not Recovered/Not Resolved]
  - Hypokalaemia [Unknown]
  - Pericardial effusion malignant [Unknown]
  - Abdominal pain [Not Recovered/Not Resolved]
  - Decubitus ulcer [Unknown]
  - Clostridium difficile infection [Unknown]
  - Wound [Unknown]
  - Diarrhoea [Unknown]
  - Metastases to liver [Unknown]
  - Anaemia [Unknown]

NARRATIVE: CASE EVENT DATE: 20160428
